FAERS Safety Report 6873236-8 (Version None)
Quarter: 2010Q3

REPORT INFORMATION
  Report Type: 
  Country: None (occurrence: None)
  Receive Date: 20100723
  Receipt Date: 20090107
  Transmission Date: 20110219
  Serious: Yes (Other)
  Sender: FDA-Public Use
  Company Number: US-PFIZER INC-2009153042

PATIENT
  Sex: Female
  Weight: 110.67 kg

DRUGS (6)
  1. CHANTIX [Suspect]
     Indication: SMOKING CESSATION THERAPY
     Route: 048
  2. ABILIFY [Concomitant]
  3. LEVOTHYROXINE SODIUM [Concomitant]
  4. METFORMIN HYDROCHLORIDE [Concomitant]
  5. GLIPIZIDE [Concomitant]
  6. DICLOFENAC [Concomitant]

REACTIONS (4)
  - BLOOD GLUCOSE INCREASED [None]
  - DYSPHONIA [None]
  - MALAISE [None]
  - OROPHARYNGEAL PAIN [None]
